FAERS Safety Report 8478139-3 (Version None)
Quarter: 2012Q2

REPORT INFORMATION
  Report Type: 
  Country: None (occurrence: None)
  Receive Date: 20120629
  Receipt Date: 20120620
  Transmission Date: 20120825
  Serious: Yes (Other)
  Sender: FDA-Public Use
  Company Number: PHHY2012ES052975

PATIENT
  Age: 34 Year
  Sex: Female

DRUGS (4)
  1. METHYLPREDNISOLONE [Concomitant]
     Dosage: 1 G, QMO
  2. PAROXETINE HCL [Concomitant]
     Dosage: UNK UKN, UNK
  3. GILENYA [Suspect]
     Indication: MULTIPLE SCLEROSIS
     Dosage: 0.5 MG, QD
     Route: 048
  4. BACLOFEN [Concomitant]
     Dosage: UNK UKN, UNK

REACTIONS (2)
  - CEREBRAL DISORDER [None]
  - PROGRESSIVE MULTIFOCAL LEUKOENCEPHALOPATHY [None]
